FAERS Safety Report 13689891 (Version 5)
Quarter: 2017Q3

REPORT INFORMATION
  Report Type: Report from Study
  Country: GB (occurrence: GB)
  Receive Date: 20170626
  Receipt Date: 20170922
  Transmission Date: 20171127
  Serious: Yes (Other)
  Sender: FDA-Public Use
  Company Number: GB-JNJFOC-20170528522

PATIENT
  Age: 55 Year
  Sex: Female

DRUGS (2)
  1. SIMPONI [Suspect]
     Active Substance: GOLIMUMAB
     Indication: PRODUCT USED FOR UNKNOWN INDICATION
     Route: 058
     Dates: start: 20170509
  2. SIMPONI [Suspect]
     Active Substance: GOLIMUMAB
     Indication: PRODUCT USED FOR UNKNOWN INDICATION
     Route: 058

REACTIONS (9)
  - Pharyngitis [Not Recovered/Not Resolved]
  - Infection [Unknown]
  - Lethargy [Not Recovered/Not Resolved]
  - Pain [Not Recovered/Not Resolved]
  - Rhinorrhoea [Not Recovered/Not Resolved]
  - Mouth ulceration [Not Recovered/Not Resolved]
  - Drug ineffective [Not Recovered/Not Resolved]
  - Urinary tract infection [Unknown]
  - Swelling [Not Recovered/Not Resolved]

NARRATIVE: CASE EVENT DATE: 20170421
